FAERS Safety Report 4340547-X (Version None)
Quarter: 2004Q2

REPORT INFORMATION
  Report Type: 
  Country: None (occurrence: None)
  Receive Date: 20040415
  Receipt Date: 20040329
  Transmission Date: 20050107
  Serious: Yes (Hospitalization)
  Sender: FDA-Public Use
  Company Number: 7725

PATIENT
  Age: 17 Year
  Sex: Male

DRUGS (24)
  1. CYTARABINE (BATCH # M061976) [Suspect]
     Indication: LEUKAEMIA
     Dosage: 140 MG
     Route: 042
     Dates: start: 20040324, end: 20040327
  2. SODIUM CHLORIDE (BATCH #: 04A16G50) [Suspect]
     Dosage: 100 ML
     Route: 042
     Dates: start: 20040324, end: 20040327
  3. VINCRISTINE [Concomitant]
  4. GRANISETRON [Concomitant]
  5. DEXAMETHASONE [Concomitant]
  6. ETOPOSIDE [Concomitant]
  7. METOCLOPRAMIDE [Concomitant]
  8. DAUNORUBICIN [Concomitant]
  9. TIOGUANINE [Concomitant]
  10. FLUCONAZOLE [Concomitant]
  11. ACYCLOVIR [Concomitant]
  12. CIPROFLOXACIN [Concomitant]
  13. ACETAMINOPHEN [Concomitant]
  14. CALCIUM CARBONATE [Concomitant]
  15. PIPERACILLIN + TAZOBACTAM [Concomitant]
  16. GENTAMICIN [Concomitant]
  17. MEROPENEM [Concomitant]
  18. AMIKACIN [Concomitant]
  19. LANSOPRAZOLE [Concomitant]
  20. TEICOPLANIN [Concomitant]
  21. AMPHOTERICIN B [Concomitant]
  22. AMILORIDE [Concomitant]
  23. CALCIUM [Concomitant]
  24. POTASSIUM CHLORIDE [Concomitant]

REACTIONS (6)
  - BLOOD PRESSURE DECREASED [None]
  - CARDIAC DISORDER [None]
  - CHEST PAIN [None]
  - DYSPNOEA [None]
  - HYPERHIDROSIS [None]
  - TACHYCARDIA [None]
